FAERS Safety Report 5878724-9 (Version None)
Quarter: 2008Q3

REPORT INFORMATION
  Report Type: 
  Country: None (occurrence: None)
  Receive Date: 20080910
  Receipt Date: 20080910
  Transmission Date: 20090109
  Serious: No
  Sender: FDA-Public Use
  Company Number: None

PATIENT
  Age: 55 Year
  Sex: Female
  Weight: 90.7194 kg

DRUGS (1)
  1. CHANTIX [Suspect]
     Indication: SMOKING CESSATION THERAPY
     Dosage: 2 DAILEY PO
     Route: 048
     Dates: start: 20071217, end: 20080121

REACTIONS (6)
  - ABNORMAL BEHAVIOUR [None]
  - AMNESIA [None]
  - HOMICIDAL IDEATION [None]
  - MENTAL IMPAIRMENT [None]
  - PARANOIA [None]
  - SLEEP DISORDER [None]
